FAERS Safety Report 19321555 (Version 1)
Quarter: 2021Q2

REPORT INFORMATION
  Report Type: Report from Study
  Country: US (occurrence: US)
  Receive Date: 20210527
  Receipt Date: 20210527
  Transmission Date: 20210717
  Serious: Yes (Hospitalization)
  Sender: FDA-Public Use
  Company Number: US-BAUSCH-BL-2021-018385

PATIENT
  Age: 40 Year
  Sex: Male

DRUGS (3)
  1. XIFAXAN [Suspect]
     Active Substance: RIFAXIMIN
     Dosage: TOOK ONLY NIGHT DOSE DUE TO MISSING MORNING DOSE
     Route: 048
     Dates: start: 20210519
  2. LACTULOSE. [Concomitant]
     Active Substance: LACTULOSE
     Indication: PRODUCT USED FOR UNKNOWN INDICATION
  3. XIFAXAN [Suspect]
     Active Substance: RIFAXIMIN
     Indication: HEPATIC CIRRHOSIS
     Route: 048
     Dates: start: 20210101, end: 20210518

REACTIONS (6)
  - Pleural effusion [Recovered/Resolved]
  - Ill-defined disorder [Unknown]
  - Product dose omission issue [Unknown]
  - Paranoia [Recovered/Resolved]
  - Mental status changes [Recovered/Resolved]
  - Delirium [Recovered/Resolved]

NARRATIVE: CASE EVENT DATE: 202105
